FAERS Safety Report 4396276-X (Version None)
Quarter: 2004Q3

REPORT INFORMATION
  Report Type: 
  Country: None (occurrence: None)
  Receive Date: 20040709
  Receipt Date: 20040623
  Transmission Date: 20050211
  Serious: Yes (Death, Hospitalization, Other)
  Sender: FDA-Public Use
  Company Number: 2004-BP-04966MX

PATIENT
  Age: 74 Year
  Sex: Male

DRUGS (5)
  1. SPIRIVA [Suspect]
     Indication: CHRONIC OBSTRUCTIVE AIRWAYS DISEASE
     Dosage: 18 MCG (18 MCG, 1 KAI OD)
     Route: 055
     Dates: start: 20031001, end: 20040529
  2. COMBIVENT [Suspect]
     Indication: CHRONIC OBSTRUCTIVE AIRWAYS DISEASE
     Dosage: 0.500 / 2.5 MG (SEE TEST, 1/2 LOH BID (0.500 / 2.5 MG)
     Route: 055
     Dates: start: 20030401, end: 20040501
  3. SERETIDE (AE) [Concomitant]
  4. CUMARINA (TA) [Concomitant]
  5. CORDARONE         (AMIODARONE HYDROCHLORIDE) (TA) [Concomitant]

REACTIONS (5)
  - ACUTE RESPIRATORY FAILURE [None]
  - CARDIO-RESPIRATORY ARREST [None]
  - HYPEROXIA [None]
  - HYPOCAPNIA [None]
  - MUSCLE FATIGUE [None]
